FAERS Safety Report 6673142-8 (Version None)
Quarter: 2010Q2

REPORT INFORMATION
  Report Type: 
  Country: None (occurrence: None)
  Receive Date: 20100406
  Receipt Date: 20100406
  Transmission Date: 20101027
  Serious: Yes (Hospitalization, Other)
  Sender: FDA-Public Use
  Company Number: AUR-APL-2010-00867

PATIENT
  Age: 44 Year
  Sex: Female

DRUGS (8)
  1. ONDANSETRON [Suspect]
     Indication: PROPHYLAXIS OF NAUSEA AND VOMITING
     Dosage: 4 MG, ONE DOSE; IV
     Route: 042
  2. DULOXETINE HYDROCHLORIDE [Suspect]
  3. FENTANYL [Suspect]
     Dosage: 100, 250 UG, PRE AND PERI-OPERATIVELY; INTRAVENOUS
     Route: 042
  4. LITHIUM [Suspect]
  5. QUETIAPINE [Suspect]
  6. CLONAZEPAM [Suspect]
  7. LAMOTRIGINE [Suspect]
  8. TOPIRAMATE [Suspect]

REACTIONS (4)
  - APHASIA [None]
  - DISTURBANCE IN ATTENTION [None]
  - SEROTONIN SYNDROME [None]
  - UNRESPONSIVE TO STIMULI [None]
